FAERS Safety Report 8230687-7 (Version None)
Quarter: 2012Q1

REPORT INFORMATION
  Report Type: 
  Country: None (occurrence: None)
  Receive Date: 20120323
  Receipt Date: 20120321
  Transmission Date: 20120608
  Serious: Yes (Other)
  Sender: FDA-Public Use
  Company Number: US-AMGEN-USASP2012018206

PATIENT
  Age: 58 Year
  Sex: Female

DRUGS (7)
  1. REMERON [Concomitant]
  2. PREVACID [Concomitant]
  3. SYNTHROID [Concomitant]
  4. ESTRADIOL [Concomitant]
  5. FENTANYL [Concomitant]
  6. PROLIA [Suspect]
     Indication: OSTEOPOROSIS POSTMENOPAUSAL
     Dates: start: 20120201
  7. TIGAN [Concomitant]

REACTIONS (2)
  - MEMORY IMPAIRMENT [None]
  - HALLUCINATION, AUDITORY [None]
